FAERS Safety Report 24353832 (Version 2)
Quarter: 2025Q2

REPORT INFORMATION
  Report Type: Spontaneous
  Country: US (occurrence: US)
  Receive Date: 20240923
  Receipt Date: 20250607
  Transmission Date: 20250716
  Serious: No
  Sender: STEMLINE THERAPEUTICS
  Company Number: US-Stemline Therapeutics, Inc.-2024ST003068

PATIENT
  Age: 85 Year
  Sex: Female

DRUGS (2)
  1. ORSERDU [Suspect]
     Active Substance: ELACESTRANT
     Indication: Product used for unknown indication
  2. ORSERDU [Suspect]
     Active Substance: ELACESTRANT

REACTIONS (4)
  - Somnolence [Not Recovered/Not Resolved]
  - Weight decreased [Not Recovered/Not Resolved]
  - Fatigue [Unknown]
  - Decreased appetite [Not Recovered/Not Resolved]
